FAERS Safety Report 13045197 (Version 1)
Quarter: 2016Q4

REPORT INFORMATION
  Report Type: Spontaneous
  Country: JP (occurrence: JP)
  Receive Date: 20161220
  Receipt Date: 20161220
  Transmission Date: 20170207
  Serious: Yes (Other)
  Sender: FDA-Public Use
  Company Number: JP-009507513-1612JPN009659

PATIENT
  Sex: Female

DRUGS (4)
  1. DEXTROSE. [Concomitant]
     Active Substance: DEXTROSE
     Dosage: UNK
     Dates: start: 2016
  2. INSULIN [Concomitant]
     Active Substance: INSULIN NOS
     Dosage: UNK
     Dates: start: 2016
  3. AMARYL [Concomitant]
     Active Substance: GLIMEPIRIDE
  4. GLACTIV [Suspect]
     Active Substance: SITAGLIPTIN
     Indication: TYPE 2 DIABETES MELLITUS
     Dosage: 12.5 MG, ONCE A DAY
     Route: 045
     Dates: start: 2016

REACTIONS (4)
  - Drug prescribing error [Unknown]
  - Hypoglycaemia [Unknown]
  - Lack of spontaneous speech [Unknown]
  - Depressed level of consciousness [Unknown]

NARRATIVE: CASE EVENT DATE: 2016
